FAERS Safety Report 4380502-7 (Version None)
Quarter: 2004Q2

REPORT INFORMATION
  Report Type: 
  Country: None (occurrence: None)
  Receive Date: 20040614
  Receipt Date: 20040210
  Transmission Date: 20050107
  Serious: Yes (Hospitalization)
  Sender: FDA-Public Use
  Company Number: WAES 0402USA01419

PATIENT
  Age: 60 Year
  Sex: Female
  Weight: 60.782 kg

DRUGS (1)
  1. COZAAR [Suspect]
     Indication: HYPERTENSION
     Dosage: 50 MG/DAILY/PO
     Route: 048
     Dates: start: 20031223, end: 20040106

REACTIONS (4)
  - ASPARTATE AMINOTRANSFERASE INCREASED [None]
  - BLOOD CHLORIDE DECREASED [None]
  - BLOOD SODIUM DECREASED [None]
  - CHEST PAIN [None]
